FAERS Safety Report 7584273-2 (Version None)
Quarter: 2011Q2

REPORT INFORMATION
  Report Type: 
  Country: None (occurrence: None)
  Receive Date: 20110630
  Receipt Date: 20110630
  Transmission Date: 20111010
  Serious: Yes (Life-Threatening, Hospitalization, Other)
  Sender: FDA-Public Use
  Company Number: GB-EISAI INC-E2020-08584-SOL-GB

PATIENT
  Sex: Male
  Weight: 88.9 kg

DRUGS (10)
  1. TAMSULOSIN MR [Concomitant]
     Route: 048
     Dates: start: 20101115
  2. THIAMINE [Concomitant]
     Route: 048
     Dates: start: 20090812
  3. ALLOPURINOL [Concomitant]
     Indication: GOUT
     Route: 048
     Dates: start: 20080527
  4. DOCUSATE [Concomitant]
     Route: 048
  5. ARICEPT [Suspect]
     Route: 048
     Dates: start: 20101207, end: 20110223
  6. ARICEPT [Suspect]
     Route: 048
     Dates: start: 20100901, end: 20100101
  7. VITAMIN B COMPOUND [Concomitant]
     Dosage: 1 TABLET 3 TIMES A DAY
     Route: 048
     Dates: start: 20090812
  8. ATENOLOL [Concomitant]
     Indication: HYPERTENSION
     Route: 048
     Dates: start: 20021113
  9. ARICEPT [Suspect]
     Route: 048
     Dates: start: 20100101, end: 20101207
  10. ASPIRIN DISPERSIBLE TABLET [Concomitant]
     Route: 048

REACTIONS (3)
  - BLOOD URINE PRESENT [None]
  - EPILEPSY [None]
  - DEMENTIA ALZHEIMER'S TYPE [None]
